FAERS Safety Report 5511731-4 (Version None)
Quarter: 2007Q4

REPORT INFORMATION
  Report Type: 
  Country: None (occurrence: None)
  Receive Date: 20071109
  Receipt Date: 20071029
  Transmission Date: 20080405
  Serious: Yes (Other)
  Sender: FDA-Public Use
  Company Number: JP-PFIZER INC-2007091859

PATIENT
  Age: 89 Year
  Sex: Female

DRUGS (1)
  1. HALCION [Suspect]
     Route: 048
     Dates: start: 20070901, end: 20070101

REACTIONS (1)
  - CEREBRAL ISCHAEMIA [None]
